FAERS Safety Report 23272156 (Version 1)
Quarter: 2023Q4

REPORT INFORMATION
  Report Type: Report from Study
  Country: US (occurrence: US)
  Receive Date: 20231207
  Receipt Date: 20231207
  Transmission Date: 20240109
  Serious: No
  Sender: FDA-Public Use
  Company Number: US-AGIOS-2311US03556

PATIENT
  Sex: Male

DRUGS (3)
  1. MITAPIVAT [Suspect]
     Active Substance: MITAPIVAT
     Indication: Anaemia of chronic disease
     Dosage: 5 MILLIGRAM, BID
     Route: 048
     Dates: start: 20220917
  2. MITAPIVAT [Suspect]
     Active Substance: MITAPIVAT
     Indication: Thalassaemia alpha
  3. MITAPIVAT [Suspect]
     Active Substance: MITAPIVAT
     Indication: Chronic kidney disease

REACTIONS (2)
  - Full blood count decreased [Unknown]
  - Off label use [Unknown]
